FAERS Safety Report 9529894 (Version 1)
Quarter: 2013Q3

REPORT INFORMATION
  Report Type: Spontaneous
  Country: US (occurrence: US)
  Receive Date: 20130917
  Receipt Date: 20130917
  Transmission Date: 20140515
  Serious: Yes (Other)
  Sender: FDA-Public Use
  Company Number: US-ASTRAZENECA-2013SE67633

PATIENT
  Age: 67 Year
  Sex: Female
  Weight: 48.1 kg

DRUGS (20)
  1. NEXIUM [Suspect]
     Indication: GASTROOESOPHAGEAL REFLUX DISEASE
     Route: 048
     Dates: start: 2008, end: 201308
  2. TOPROL XL [Suspect]
     Indication: CARDIAC DISORDER
     Route: 048
     Dates: start: 2004, end: 201308
  3. TOPROL XL [Suspect]
     Indication: CARDIAC DISORDER
     Route: 048
  4. GABAPENTIN [Concomitant]
     Indication: NEUROPATHY PERIPHERAL
     Route: 048
  5. ACTEMRA [Concomitant]
     Indication: RHEUMATOID ARTHRITIS
     Dosage: MONTH
     Route: 042
  6. ASPIRIN [Concomitant]
     Indication: CARDIAC DISORDER
     Route: 048
  7. AMLODIPINE [Concomitant]
     Indication: ANGINA PECTORIS
     Route: 048
  8. BUMEX [Concomitant]
     Indication: CARDIAC FAILURE CONGESTIVE
     Route: 048
  9. CALCIUM CITRATE PLUS D [Concomitant]
     Indication: OSTEOPOROSIS
     Dosage: 1 TAB
     Route: 048
  10. FOLIC ACID [Concomitant]
     Route: 048
  11. IMDUR [Concomitant]
     Indication: ANGINA PECTORIS
     Route: 048
  12. POTASSIUM [Concomitant]
     Route: 048
  13. LEXAPRO [Concomitant]
     Indication: DEPRESSION
     Route: 048
  14. MOBIC [Concomitant]
     Indication: RHEUMATOID ARTHRITIS
     Route: 048
  15. NITROSTAT [Concomitant]
     Indication: ANGINA PECTORIS
     Dosage: 0.4MG
     Route: 048
  16. LIPITOR [Concomitant]
     Indication: BLOOD CHOLESTEROL ABNORMAL
     Route: 048
  17. SPIRALACTONE [Concomitant]
     Indication: CARDIAC FAILURE CONGESTIVE
     Route: 048
  18. VIT D [Concomitant]
     Indication: SUPPLEMENTATION THERAPY
     Route: 048
  19. VIT E [Concomitant]
     Indication: SUPPLEMENTATION THERAPY
     Dosage: 400 U DAILY
     Route: 048
  20. MVI [Concomitant]
     Indication: SUPPLEMENTATION THERAPY
     Dosage: 1 TAB DAILY
     Route: 048

REACTIONS (11)
  - Ejection fraction decreased [Not Recovered/Not Resolved]
  - Rib fracture [Not Recovered/Not Resolved]
  - Arterial occlusive disease [Not Recovered/Not Resolved]
  - Nephrolithiasis [Not Recovered/Not Resolved]
  - Dyspepsia [Not Recovered/Not Resolved]
  - Angina pectoris [Unknown]
  - Therapeutic response unexpected [Not Recovered/Not Resolved]
  - Road traffic accident [Not Recovered/Not Resolved]
  - Gastrooesophageal reflux disease [Not Recovered/Not Resolved]
  - Drug dose omission [Unknown]
  - Off label use [Not Recovered/Not Resolved]
